FAERS Safety Report 8421744-0 (Version None)
Quarter: 2012Q2

REPORT INFORMATION
  Report Type: 
  Country: None (occurrence: None)
  Receive Date: 20120608
  Receipt Date: 20120530
  Transmission Date: 20120825
  Serious: Yes (Death, Hospitalization)
  Sender: FDA-Public Use
  Company Number: HU-BRISTOL-MYERS SQUIBB COMPANY-16381667

PATIENT
  Age: 67 Year
  Sex: Male
  Weight: 39 kg

DRUGS (8)
  1. TRAMADOL HCL [Concomitant]
  2. FUROSEMIDE [Concomitant]
  3. SOLU-MEDROL [Concomitant]
  4. POTASSIUM CHLORIDE [Concomitant]
  5. CISPLATIN [Suspect]
     Indication: NON-SMALL CELL LUNG CANCER
  6. GEMZAR [Suspect]
     Indication: NON-SMALL CELL LUNG CANCER
  7. SPIRIVA [Concomitant]
  8. NECITUMUMAB [Suspect]
     Indication: NON-SMALL CELL LUNG CANCER

REACTIONS (1)
  - CARDIAC FAILURE [None]
